FAERS Safety Report 9060643 (Version 1)
Quarter: 2013Q1

REPORT INFORMATION
  Report Type: Spontaneous
  Country: US (occurrence: US)
  Receive Date: 20130211
  Receipt Date: 20130211
  Transmission Date: 20140127
  Serious: No
  Sender: FDA-Public Use
  Company Number: US-009507513-1302USA001380

PATIENT
  Age: 72 Year
  Sex: Female

DRUGS (2)
  1. ZETIA [Suspect]
     Indication: DYSLIPIDAEMIA
     Dosage: 10 MG, QD
     Route: 048
     Dates: start: 201211
  2. NIACIN [Concomitant]
     Dosage: 250 MG, UNK

REACTIONS (1)
  - Drug ineffective [Recovering/Resolving]
